FAERS Safety Report 4766365-6 (Version None)
Quarter: 2005Q3

REPORT INFORMATION
  Report Type: 
  Country: None (occurrence: None)
  Receive Date: 20050909
  Receipt Date: 20050824
  Transmission Date: 20060218
  Serious: Yes (Hospitalization)
  Sender: FDA-Public Use
  Company Number: S05-BEL-03251-01

PATIENT
  Age: 75 Year
  Sex: Female

DRUGS (9)
  1. MONUROL [Suspect]
     Dosage: 3 G ONCE, PO
     Route: 048
     Dates: start: 20040517, end: 20040517
  2. MONUROL [Suspect]
     Dosage: 3 G ONCE, PO
     Route: 048
     Dates: start: 20050601, end: 20050601
  3. XANITOL LUTEINE [Concomitant]
  4. ALDACTAZINE [Concomitant]
  5. ACETAMINOPHEN [Concomitant]
  6. OROFAR (BENZOXONIUM CHLORIDE) [Concomitant]
  7. LORAMET (LORMETAZEPAM) [Concomitant]
  8. QUINTEX [Concomitant]
  9. MICONAZOLE NITRATE [Concomitant]

REACTIONS (4)
  - HYPOKALAEMIA [None]
  - INFLAMMATION [None]
  - RASH MACULO-PAPULAR [None]
  - TOXIC SKIN ERUPTION [None]
